FAERS Safety Report 9772547 (Version 1)
Quarter: 2013Q4

REPORT INFORMATION
  Report Type: Spontaneous
  Country: US (occurrence: None)
  Receive Date: 20131218
  Receipt Date: 20131218
  Transmission Date: 20140711
  Serious: Yes (Other)
  Sender: FDA-Public Use
  Company Number: 2013CT000105

PATIENT
  Age: 46 Year
  Sex: Female

DRUGS (9)
  1. KORLYM [Suspect]
     Indication: PITUITARY-DEPENDENT CUSHING^S SYNDROME
     Route: 048
     Dates: start: 201305
  2. ASPIRIN [Concomitant]
  3. VITAMIN D [Concomitant]
  4. LISINOPRIL [Concomitant]
  5. PLAVIX [Concomitant]
  6. LEVOTHYROXINE [Concomitant]
  7. LIPITOR [Concomitant]
  8. ALDACTONE [Concomitant]
  9. PROGESTERONE [Concomitant]

REACTIONS (1)
  - Amenorrhoea [None]
